FAERS Safety Report 7674627-8 (Version None)
Quarter: 2011Q3

REPORT INFORMATION
  Report Type: 
  Country: None (occurrence: None)
  Receive Date: 20110810
  Receipt Date: 20110803
  Transmission Date: 20111222
  Serious: Yes (Other)
  Sender: FDA-Public Use
  Company Number: PHEH2011US00628

PATIENT
  Sex: Female

DRUGS (4)
  1. RECLAST [Suspect]
     Dosage: 5 MG, YEARLY
     Route: 042
     Dates: start: 20100524
  2. GLUCOPHAGE [Concomitant]
     Dosage: UNK UKN, UNK
  3. COZAAR [Concomitant]
     Dosage: UNK UKN, UNK
  4. NEXIUM [Suspect]
     Dosage: 40 MG, QD

REACTIONS (3)
  - OSTEOPOROSIS [None]
  - ACHLORHYDRIA [None]
  - INFLUENZA LIKE ILLNESS [None]
